FAERS Safety Report 22207514 (Version 3)
Quarter: 2023Q2

REPORT INFORMATION
  Report Type: Spontaneous
  Country: US (occurrence: US)
  Receive Date: 20230413
  Receipt Date: 20230605
  Transmission Date: 20230721
  Serious: Yes (Other)
  Sender: FDA-Public Use
  Company Number: US-PFIZER INC-PV202200126692

PATIENT
  Age: 61 Year
  Sex: Female

DRUGS (1)
  1. PREMARIN [Suspect]
     Active Substance: ESTROGENS, CONJUGATED
     Indication: Routine health maintenance
     Dosage: 0.3 MG, DAILY (AS DIRECTED)
     Route: 048

REACTIONS (5)
  - Ear infection [Unknown]
  - Post procedural complication [Unknown]
  - Deafness [Unknown]
  - Off label use [Unknown]
  - Seasonal allergy [Unknown]
